FAERS Safety Report 5877610-8 (Version None)
Quarter: 2008Q3

REPORT INFORMATION
  Report Type: 
  Country: None (occurrence: None)
  Receive Date: 20080818
  Receipt Date: 20080109
  Transmission Date: 20090109
  Serious: No
  Sender: FDA-Public Use
  Company Number: 20084605

PATIENT
  Sex: Male

DRUGS (1)
  1. LIORESAL [Suspect]
     Indication: MUSCLE SPASTICITY
     Dosage: DAILY, INTRATHECAL
     Route: 037

REACTIONS (5)
  - ASTHENIA [None]
  - ATAXIA [None]
  - DYSPNOEA [None]
  - HYPERHIDROSIS [None]
  - HYPOTONIA [None]
